FAERS Safety Report 19052454 (Version 2)
Quarter: 2021Q4

REPORT INFORMATION
  Report Type: Spontaneous
  Country: NL (occurrence: NL)
  Receive Date: 20210324
  Receipt Date: 20211004
  Transmission Date: 20220304
  Serious: Yes (Hospitalization, Other)
  Sender: FDA-Public Use
  Company Number: NL-ADVANZ PHARMA -202103002238

PATIENT

DRUGS (2)
  1. PILOCARPINE [Suspect]
     Active Substance: PILOCARPINE
     Indication: Dry mouth
     Dosage: AT A DOSE OF 60 5 MG TABLETS
     Route: 048
  2. PILOCARPINE [Suspect]
     Active Substance: PILOCARPINE
     Indication: Sedation

REACTIONS (10)
  - Hypoxia [Recovered/Resolved]
  - Respiratory failure [Recovered/Resolved]
  - Respiratory distress [Recovered/Resolved]
  - Increased bronchial secretion [Recovered/Resolved]
  - Overdose [Unknown]
  - Cholinergic syndrome [Recovered/Resolved]
  - Lactic acidosis [Recovered/Resolved]
  - Hypokalaemia [Recovered/Resolved]
  - Wheezing [Recovered/Resolved]
  - Hyperhidrosis [Recovered/Resolved]
